FAERS Safety Report 6667574-1 (Version None)
Quarter: 2010Q1

REPORT INFORMATION
  Report Type: 
  Country: None (occurrence: None)
  Receive Date: 20100331
  Receipt Date: 20100317
  Transmission Date: 20100710
  Serious: Yes (Other)
  Sender: FDA-Public Use
  Company Number: 1000012670

PATIENT
  Age: 60 Year
  Sex: Male
  Weight: 77.4 kg

DRUGS (10)
  1. CITALOPRAM HYDROBROMIDE [Suspect]
     Indication: DEPRESSION
     Dosage: 20 MG (20 MG, 1 IN 1 D) ORAL
     Route: 048
     Dates: end: 20100212
  2. CLOZARIL [Suspect]
     Indication: SCHIZOPHRENIA
     Dosage: 400 MG, ORAL,
     Route: 048
     Dates: start: 20091023
  3. CLOZARIL [Suspect]
     Indication: SCHIZOPHRENIA
     Dosage: 500 MG
     Route: 048
  4. CLOZARIL [Concomitant]
     Indication: SCHIZOPHRENIA
     Dosage: ORAL
  5. IRON [Concomitant]
  6. METFORMIN HCL [Concomitant]
  7. OMEPRAZOLE [Concomitant]
  8. PROPRANOLOL [Concomitant]
  9. ASPIRIN [Concomitant]
  10. GLICLAZIDE [Concomitant]

REACTIONS (4)
  - BLOOD ALKALINE PHOSPHATASE INCREASED [None]
  - BLOOD SODIUM DECREASED [None]
  - DRUG LEVEL INCREASED [None]
  - PNEUMONIA [None]
